FAERS Safety Report 17505137 (Version 1)
Quarter: 2020Q1

REPORT INFORMATION
  Report Type: Spontaneous
  Country: US (occurrence: US)
  Receive Date: 20200306
  Receipt Date: 20200306
  Transmission Date: 20200409
  Serious: No
  Sender: FDA-Public Use
  Company Number: US-AMGEN INC.-USASP2020036480

PATIENT
  Sex: Female

DRUGS (6)
  1. TOPAMAX [Concomitant]
     Active Substance: TOPIRAMATE
     Dosage: UNK
  2. BENADRYL [Concomitant]
     Active Substance: DIPHENHYDRAMINE HYDROCHLORIDE
     Dosage: UNK
  3. VALIUM [Concomitant]
     Active Substance: DIAZEPAM
     Dosage: UNK
  4. AIMOVIG [Suspect]
     Active Substance: ERENUMAB-AOOE
     Indication: MIGRAINE
     Dosage: UNK
     Route: 065
  5. SUMATRIPTAN. [Concomitant]
     Active Substance: SUMATRIPTAN
     Dosage: UNK
  6. METOPROLOL. [Concomitant]
     Active Substance: METOPROLOL
     Dosage: UNK

REACTIONS (4)
  - Oligomenorrhoea [Unknown]
  - Fatigue [Recovered/Resolved]
  - Back pain [Unknown]
  - Pain in extremity [Unknown]

NARRATIVE: CASE EVENT DATE: 201912
